FAERS Safety Report 18096488 (Version 39)
Quarter: 2025Q3

REPORT INFORMATION
  Report Type: Report from Study
  Country: US (occurrence: US)
  Receive Date: 20200731
  Receipt Date: 20250927
  Transmission Date: 20251021
  Serious: Yes (Other)
  Sender: TAKEDA
  Company Number: US-SHIRE-US202024645

PATIENT
  Age: 54 Year
  Sex: Female
  Weight: 123 kg

DRUGS (65)
  1. HUMAN IMMUNOGLOBULIN G [Suspect]
     Active Substance: HUMAN IMMUNOGLOBULIN G
     Indication: Immunodeficiency common variable
     Dosage: 20 GRAM, 1/WEEK
     Dates: start: 20170412
  2. HUMAN IMMUNOGLOBULIN G [Suspect]
     Active Substance: HUMAN IMMUNOGLOBULIN G
     Indication: Primary immunodeficiency syndrome
     Dosage: 20 GRAM, 1/WEEK
     Dates: start: 20170715
  3. HUMAN IMMUNOGLOBULIN G [Suspect]
     Active Substance: HUMAN IMMUNOGLOBULIN G
     Dosage: 20 GRAM, 1/WEEK
  4. HYQVIA [Suspect]
     Active Substance: HUMAN IMMUNOGLOBULIN G\HYALURONIDASE (HUMAN RECOMBINANT)
     Indication: Immunodeficiency common variable
     Dosage: 50 GRAM, 1/WEEK
     Dates: start: 20160407
  5. HYQVIA [Suspect]
     Active Substance: HUMAN IMMUNOGLOBULIN G\HYALURONIDASE (HUMAN RECOMBINANT)
     Dosage: 50 GRAM, Q3WEEKS
  6. HYQVIA [Suspect]
     Active Substance: HUMAN IMMUNOGLOBULIN G\HYALURONIDASE (HUMAN RECOMBINANT)
     Dosage: 20 GRAM, 1/WEEK
     Dates: start: 20170706
  7. AMOXICILLIN [Suspect]
     Active Substance: AMOXICILLIN
     Indication: Product used for unknown indication
  8. TINACTIN [Suspect]
     Active Substance: TOLNAFTATE
     Indication: Product used for unknown indication
  9. CYCLOBENZAPRINE HYDROCHLORIDE [Concomitant]
     Active Substance: CYCLOBENZAPRINE HYDROCHLORIDE
  10. ACETAMINOPHEN [Concomitant]
     Active Substance: ACETAMINOPHEN
  11. LEVOCETIRIZINE DIHYDROCHLORIDE [Concomitant]
     Active Substance: LEVOCETIRIZINE DIHYDROCHLORIDE
  12. DYMISTA [Concomitant]
     Active Substance: AZELASTINE HYDROCHLORIDE\FLUTICASONE PROPIONATE
  13. LIVALO [Concomitant]
     Active Substance: PITAVASTATIN CALCIUM
  14. AMBIEN CR [Concomitant]
     Active Substance: ZOLPIDEM TARTRATE
  15. PROAIR HFA [Concomitant]
     Active Substance: ALBUTEROL SULFATE
  16. SINGULAIR [Concomitant]
     Active Substance: MONTELUKAST SODIUM
  17. OXYCODONE HYDROCHLORIDE [Concomitant]
     Active Substance: OXYCODONE HYDROCHLORIDE
  18. IMODIUM A-D [Concomitant]
     Active Substance: LOPERAMIDE HYDROCHLORIDE
  19. LYRICA [Concomitant]
     Active Substance: PREGABALIN
  20. RANITIDINE HYDROCHLORIDE [Concomitant]
     Active Substance: RANITIDINE HYDROCHLORIDE
  21. ONDANSETRON HYDROCHLORIDE [Concomitant]
     Active Substance: ONDANSETRON HYDROCHLORIDE
  22. SUDAFED [Concomitant]
     Active Substance: PSEUDOEPHEDRINE HYDROCHLORIDE
  23. NEXIUM [Concomitant]
     Active Substance: ESOMEPRAZOLE MAGNESIUM
  24. INCRUSE ELLIPTA [Concomitant]
     Active Substance: UMECLIDINIUM BROMIDE
  25. PROMETHAZINE HYDROCHLORIDE [Concomitant]
     Active Substance: PROMETHAZINE HYDROCHLORIDE
  26. CREON [Concomitant]
     Active Substance: PANCRELIPASE AMYLASE\PANCRELIPASE LIPASE\PANCRELIPASE PROTEASE
  27. CLEOCIN [Concomitant]
     Active Substance: CLINDAMYCIN PHOSPHATE
  28. VESICARE [Concomitant]
     Active Substance: SOLIFENACIN SUCCINATE
  29. ERYTHROMYCIN [Concomitant]
     Active Substance: ERYTHROMYCIN
  30. DICLOFENAC SODIUM [Concomitant]
     Active Substance: DICLOFENAC SODIUM
  31. CHLORDIAZEPOXIDE;CLIDINIUM [Concomitant]
  32. BENADRYL [Concomitant]
     Active Substance: DIPHENHYDRAMINE HYDROCHLORIDE
  33. HUMALOG [Concomitant]
     Active Substance: INSULIN LISPRO
  34. ROPINIROLE HYDROCHLORIDE [Concomitant]
     Active Substance: ROPINIROLE HYDROCHLORIDE
  35. SPIRIVA RESPIMAT [Concomitant]
     Active Substance: TIOTROPIUM BROMIDE
  36. PREDNISONE [Concomitant]
     Active Substance: PREDNISONE
  37. FLUCONAZOLE [Concomitant]
     Active Substance: FLUCONAZOLE
     Dosage: 100 MILLIGRAM, QD
  38. DIPHENHYDRAMINE [Concomitant]
     Active Substance: DIPHENHYDRAMINE
  39. ADVAIR HFA [Concomitant]
     Active Substance: FLUTICASONE PROPIONATE\SALMETEROL XINAFOATE
  40. DEXAMETHASONE [Concomitant]
     Active Substance: DEXAMETHASONE
  41. DOXYCYCLINE [Concomitant]
     Active Substance: DOXYCYCLINE
  42. DOXYCYCLINE HYCLATE [Concomitant]
     Active Substance: DOXYCYCLINE HYCLATE
  43. MODERNA COVID-19 VACCINE [Concomitant]
     Active Substance: ELASOMERAN
  44. METROGEL [Concomitant]
     Active Substance: METRONIDAZOLE
  45. ALBUTEROL\IPRATROPIUM [Concomitant]
     Active Substance: ALBUTEROL\IPRATROPIUM
  46. MONTELUKAST SODIUM [Concomitant]
     Active Substance: MONTELUKAST SODIUM
  47. CEFUROXIME [Concomitant]
     Active Substance: CEFUROXIME
  48. ROSUVASTATIN CALCIUM [Concomitant]
     Active Substance: ROSUVASTATIN CALCIUM
  49. CYANOCOBALAMIN [Concomitant]
     Active Substance: CYANOCOBALAMIN
  50. XYZAL [Concomitant]
     Active Substance: LEVOCETIRIZINE DIHYDROCHLORIDE
  51. PROVENTIL HFA [Concomitant]
     Active Substance: ALBUTEROL SULFATE
  52. Contour [Concomitant]
  53. ROSUVASTATIN [Concomitant]
     Active Substance: ROSUVASTATIN
  54. DICLOFENAC [Concomitant]
     Active Substance: DICLOFENAC
  55. ONDANSETRON [Concomitant]
     Active Substance: ONDANSETRON
  56. PROMETHAZINE [Concomitant]
     Active Substance: PROMETHAZINE HYDROCHLORIDE
  57. ROPINIROLE [Concomitant]
     Active Substance: ROPINIROLE
  58. SPIRIVA [Concomitant]
     Active Substance: TIOTROPIUM BROMIDE MONOHYDRATE
  59. INCRUSE ELLIPTA [Concomitant]
     Active Substance: UMECLIDINIUM BROMIDE
  60. MONTELUKAST [Concomitant]
     Active Substance: MONTELUKAST
  61. LEVOCETIRIZINE [Concomitant]
     Active Substance: LEVOCETIRIZINE
  62. EPINEPHRINE [Concomitant]
     Active Substance: EPINEPHRINE
  63. RANITIDINE [Concomitant]
     Active Substance: RANITIDINE
  64. OXYCODONE [Concomitant]
     Active Substance: OXYCODONE
  65. DIPHENHYDRAMINE HYDROCHLORIDE [Concomitant]
     Active Substance: DIPHENHYDRAMINE HYDROCHLORIDE

REACTIONS (41)
  - Kidney infection [Unknown]
  - Leukaemia [Unknown]
  - Choking [Unknown]
  - Nasopharyngitis [Unknown]
  - Weight increased [Unknown]
  - Sinusitis [Unknown]
  - Skin disorder [Unknown]
  - Injection site bruising [Unknown]
  - Drug hypersensitivity [Unknown]
  - Herpes simplex test positive [Unknown]
  - Nerve compression [Unknown]
  - Urinary tract infection [Not Recovered/Not Resolved]
  - Respiratory disorder [Unknown]
  - Ear infection [Unknown]
  - Folliculitis [Unknown]
  - Skin laceration [Unknown]
  - Bacterial vaginosis [Unknown]
  - Vaginal infection [Unknown]
  - Infection [Unknown]
  - Needle issue [Unknown]
  - Viral rash [Unknown]
  - Rash macular [Recovered/Resolved]
  - Infusion site discharge [Unknown]
  - Blood blister [Unknown]
  - Ear pain [Unknown]
  - Bladder disorder [Unknown]
  - Viral upper respiratory tract infection [Unknown]
  - Ear pruritus [Unknown]
  - Tooth infection [Recovered/Resolved]
  - Oropharyngeal pain [Unknown]
  - Rash erythematous [Unknown]
  - Injection site erythema [Recovered/Resolved]
  - Lymphadenopathy [Unknown]
  - Cough [Unknown]
  - Pain [Unknown]
  - Migraine [Unknown]
  - Diarrhoea [Unknown]
  - Headache [Recovered/Resolved]
  - Pruritus [Unknown]
  - Nausea [Unknown]
  - Inappropriate schedule of product administration [Unknown]

NARRATIVE: CASE EVENT DATE: 20210301
